FAERS Safety Report 24167172 (Version 1)
Quarter: 2024Q3

REPORT INFORMATION
  Report Type: Spontaneous
  Country: KR (occurrence: None)
  Receive Date: 20240802
  Receipt Date: 20240802
  Transmission Date: 20241017
  Serious: Yes (Hospitalization)
  Sender: ASTRAZENECA
  Company Number: 2024A173504

PATIENT
  Age: 47 Year
  Sex: Male

DRUGS (1)
  1. FASENRA [Suspect]
     Active Substance: BENRALIZUMAB
     Route: 058
     Dates: start: 20240726

REACTIONS (4)
  - Pain [Unknown]
  - Discomfort [Unknown]
  - Paraesthesia [Unknown]
  - Musculoskeletal stiffness [Unknown]
